FAERS Safety Report 7935113-0 (Version None)
Quarter: 2011Q4

REPORT INFORMATION
  Report Type: 
  Country: None (occurrence: None)
  Receive Date: 20111122
  Receipt Date: 20111115
  Transmission Date: 20120403
  Serious: Yes (Hospitalization, Other)
  Sender: FDA-Public Use
  Company Number: JP-CEPHALON-2011003388

PATIENT
  Sex: Male
  Weight: 48 kg

DRUGS (15)
  1. GRANISETRON HCL [Concomitant]
     Dates: start: 20110125, end: 20110126
  2. APREPITANT [Concomitant]
     Dates: start: 20110125, end: 20110421
  3. MECOBALAMIN [Concomitant]
  4. POVIDONE IODINE [Concomitant]
     Dates: start: 20110127
  5. PALONOSETRON HYDROCHLORIDE [Concomitant]
     Dates: start: 20110215, end: 20110420
  6. BENDAMUSTINE HCL [Suspect]
     Route: 042
     Dates: start: 20110215, end: 20110216
  7. FAMOTIDINE [Concomitant]
  8. BENDAMUSTINE HCL [Suspect]
     Indication: MANTLE CELL LYMPHOMA
     Route: 042
     Dates: start: 20110125, end: 20110126
  9. BENDAMUSTINE HCL [Suspect]
     Route: 042
     Dates: start: 20110419, end: 20110420
  10. ACYCLOVIR [Concomitant]
     Dates: start: 20110127
  11. LOXOPROFEN SODIUM [Concomitant]
  12. ITRACONAZOLE [Concomitant]
     Dates: start: 20110127
  13. DEXAMETHASONE [Concomitant]
     Dates: start: 20110215, end: 20110215
  14. TRIMETHOPRIM + SULFAMETHOXAZOLE [Concomitant]
     Dates: start: 20110127
  15. MAGNESIUM OXIDE [Concomitant]

REACTIONS (14)
  - GAMMA-GLUTAMYLTRANSFERASE INCREASED [None]
  - BLOOD ALKALINE PHOSPHATASE INCREASED [None]
  - HAEMOGLOBIN DECREASED [None]
  - VASCULITIS [None]
  - HYPERKALAEMIA [None]
  - LYMPHOCYTE COUNT DECREASED [None]
  - FEBRILE NEUTROPENIA [None]
  - PLATELET COUNT DECREASED [None]
  - NAUSEA [None]
  - WHITE BLOOD CELL COUNT DECREASED [None]
  - NEUTROPENIA [None]
  - NEUTROPHIL COUNT DECREASED [None]
  - HICCUPS [None]
  - GRANULOCYTE COUNT DECREASED [None]
